FAERS Safety Report 7553702-2 (Version None)
Quarter: 2011Q2

REPORT INFORMATION
  Report Type: 
  Country: None (occurrence: None)
  Receive Date: 20110617
  Receipt Date: 20110607
  Transmission Date: 20111010
  Serious: Yes (Hospitalization)
  Sender: FDA-Public Use
  Company Number: US-NOVOPROD-329786

PATIENT
  Age: 71 Year
  Sex: Female

DRUGS (7)
  1. LEVEMIR [Suspect]
     Dosage: 40 U, QD AT NIGHT
     Route: 058
  2. LISINOPRIL AND HYDROCHLOROTHIAZIDE [Concomitant]
     Indication: PRODUCT USED FOR UNKNOWN INDICATION
     Dosage: 20/12.5 BID
  3. EXFORGE [Concomitant]
     Indication: PRODUCT USED FOR UNKNOWN INDICATION
     Dosage: 5/320 UNK, QD
  4. CRESTOR [Concomitant]
     Indication: PRODUCT USED FOR UNKNOWN INDICATION
     Dosage: 20 MG, QD
  5. LEVOTHYROXINE SODIUM [Concomitant]
     Indication: PRODUCT USED FOR UNKNOWN INDICATION
     Dosage: 0.1 MG, QD
  6. LEVEMIR [Suspect]
     Indication: DIABETES MELLITUS
     Dosage: 30 U, QD WITH A SLIDING SCALE
     Route: 058
  7. CALCITRIOL [Concomitant]
     Indication: PRODUCT USED FOR UNKNOWN INDICATION
     Dosage: 0.25 MCG, QD

REACTIONS (6)
  - DIABETIC KETOACIDOSIS [None]
  - HYPONATRAEMIA [None]
  - RENAL FAILURE ACUTE [None]
  - DIABETES MELLITUS INADEQUATE CONTROL [None]
  - HYPOVOLAEMIA [None]
  - FUNGAL INFECTION [None]
